FAERS Safety Report 7723262-1 (Version None)
Quarter: 2011Q3

REPORT INFORMATION
  Report Type: 
  Country: None (occurrence: None)
  Receive Date: 20110901
  Receipt Date: 20110825
  Transmission Date: 20111222
  Serious: Yes (Other)
  Sender: FDA-Public Use
  Company Number: DE-PFIZER INC-2011200435

PATIENT
  Age: 33 Year
  Sex: Female
  Weight: 80 kg

DRUGS (4)
  1. VENLAFAXINE HCL [Suspect]
     Indication: DEPRESSION
     Dosage: 150 MG, 1X/DAY
     Route: 048
     Dates: start: 20100101
  2. INSULIN [Concomitant]
     Indication: GESTATIONAL DIABETES
     Dosage: UNK
  3. VENLAFAXINE HCL [Suspect]
     Dosage: 75 MG, 1X/DAY
     Route: 048
  4. TOBACCO [Concomitant]
     Dosage: UNK

REACTIONS (2)
  - ARRESTED LABOUR [None]
  - GESTATIONAL DIABETES [None]
